FAERS Safety Report 23869351 (Version 1)
Quarter: 2024Q2

REPORT INFORMATION
  Report Type: Report from Study
  Country: CN (occurrence: CN)
  Receive Date: 20240517
  Receipt Date: 20240517
  Transmission Date: 20240716
  Serious: Yes (Other)
  Sender: FDA-Public Use
  Company Number: CN-JNJFOC-20240525766

PATIENT

DRUGS (5)
  1. SPORANOX [Suspect]
     Active Substance: ITRACONAZOLE
     Indication: Acute lymphocytic leukaemia
     Route: 048
  2. SPORANOX [Suspect]
     Active Substance: ITRACONAZOLE
     Indication: Systemic mycosis
  3. VINCRISTINE [Suspect]
     Active Substance: VINCRISTINE
     Indication: Systemic mycosis
     Route: 065
  4. VORICONAZOLE [Suspect]
     Active Substance: VORICONAZOLE
     Indication: Systemic mycosis
     Route: 065
  5. FLUCONAZOLE [Suspect]
     Active Substance: FLUCONAZOLE
     Indication: Systemic mycosis
     Route: 065

REACTIONS (8)
  - Intestinal obstruction [Recovered/Resolved]
  - Inappropriate antidiuretic hormone secretion [Recovered/Resolved]
  - Hypertension [Recovered/Resolved]
  - Hypoaesthesia [Recovered/Resolved]
  - Areflexia [Recovered/Resolved]
  - Abdominal pain [Recovered/Resolved]
  - Hyponatraemia [Recovered/Resolved]
  - Abdominal distension [Recovered/Resolved]
